FAERS Safety Report 23067514 (Version 1)
Quarter: 2023Q4

REPORT INFORMATION
  Report Type: Report from Study
  Country: BE (occurrence: BE)
  Receive Date: 20231016
  Receipt Date: 20231016
  Transmission Date: 20240110
  Serious: Yes (Hospitalization)
  Sender: FDA-Public Use
  Company Number: BE-ABBVIE-5450573

PATIENT
  Age: 83 Year

DRUGS (4)
  1. CARBIDOPA\LEVODOPA [Suspect]
     Active Substance: CARBIDOPA\LEVODOPA
     Indication: Parkinson^s disease
     Dosage: MD: 10.5 ML, CD: 3.2 ML/H, ED: 2.0 ML REMAINS AT 16 HOURS
     Route: 050
     Dates: start: 20230613, end: 20230616
  2. CARBIDOPA\LEVODOPA [Suspect]
     Active Substance: CARBIDOPA\LEVODOPA
     Dosage: MD: 10.5 ML, CD: 3.2 ML/H, ED: 2.0 ML REMAINS AT 16 HOURS
     Route: 050
     Dates: start: 20230621, end: 20230913
  3. CARBIDOPA\LEVODOPA [Suspect]
     Active Substance: CARBIDOPA\LEVODOPA
     Dosage: MD: 10.5 ML, CD: 3.0 ML/H, ED: 2.0 ML REMAINS AT 16 HOURS
     Route: 050
     Dates: start: 20230616, end: 20230621
  4. CARBIDOPA\LEVODOPA [Suspect]
     Active Substance: CARBIDOPA\LEVODOPA
     Dosage: MD: 11.5 ML, CD: 3.3 ML/H, ED: 2.0 ML REMAINS AT 16 HOURS
     Route: 050
     Dates: start: 20230913

REACTIONS (1)
  - Fall [Unknown]

NARRATIVE: CASE EVENT DATE: 20231011
